FAERS Safety Report 15998870 (Version 1)
Quarter: 2019Q1

REPORT INFORMATION
  Report Type: Spontaneous
  Country: US (occurrence: US)
  Receive Date: 20190223
  Receipt Date: 20190223
  Transmission Date: 20190418
  Serious: No
  Sender: FDA-Public Use
  Company Number: PHEH2019US007647

PATIENT
  Age: 54 Year
  Sex: Female

DRUGS (1)
  1. COSENTYX [Suspect]
     Active Substance: SECUKINUMAB
     Indication: PSORIATIC ARTHROPATHY
     Route: 065
     Dates: start: 20190120

REACTIONS (4)
  - Retching [Unknown]
  - Abdominal discomfort [Unknown]
  - Nausea [Unknown]
  - Arthropathy [Unknown]

NARRATIVE: CASE EVENT DATE: 20190218
